FAERS Safety Report 4341848-1 (Version None)
Quarter: 2004Q2

REPORT INFORMATION
  Report Type: 
  Country: None (occurrence: None)
  Receive Date: 20040415
  Receipt Date: 20040405
  Transmission Date: 20050107
  Serious: Yes (Hospitalization)
  Sender: FDA-Public Use
  Company Number: JP-JNJFOC-20031002624

PATIENT
  Age: 42 Year
  Sex: Female
  Weight: 50 kg

DRUGS (11)
  1. REMICADE [Suspect]
     Indication: RHEUMATOID ARTHRITIS
     Dosage: 3 MG/KG, 1 IN 1 AS NECESSARY, INTRAVENOUS DRIP
     Route: 041
     Dates: start: 20031004, end: 20031004
  2. RHEUMATREX [Suspect]
     Indication: RHEUMATOID ARTHRITIS
     Dosage: 6 MG,  IN 1 WEEK
     Dates: start: 20030628, end: 20031010
  3. METHOTREXATE [Concomitant]
  4. PREDNISOLONE [Concomitant]
  5. VOLTAREN [Concomitant]
  6. ISONIAZID [Concomitant]
  7. ISALON (ALDIOXA) [Concomitant]
  8. CIMETIDINE [Concomitant]
  9. LEVOTHYROXINE SODIUM [Concomitant]
  10. CLINORIL [Concomitant]
  11. SULINDAC [Concomitant]

REACTIONS (3)
  - ARTHRITIS INFECTIVE [None]
  - PURULENT DISCHARGE [None]
  - SEPSIS [None]
